FAERS Safety Report 10069046 (Version 1)
Quarter: 2014Q2

REPORT INFORMATION
  Report Type: Spontaneous
  Country: US (occurrence: US)
  Receive Date: 20140409
  Receipt Date: 20140409
  Transmission Date: 20141212
  Serious: No
  Sender: FDA-Public Use
  Company Number: US-ASTRAZENECA-2014SE07062

PATIENT
  Age: 60 Year
  Sex: Male

DRUGS (5)
  1. BRILINTA [Suspect]
     Indication: ACUTE MYOCARDIAL INFARCTION
     Route: 048
     Dates: end: 201401
  2. ASPIRIN [Suspect]
     Route: 065
  3. WELCHOL [Concomitant]
  4. CLOPIDOGREL [Concomitant]
     Dates: start: 201401
  5. PRAVASTATIN [Concomitant]

REACTIONS (2)
  - Liver disorder [Unknown]
  - Contusion [Unknown]
